FAERS Safety Report 7389135-1 (Version None)
Quarter: 2011Q2

REPORT INFORMATION
  Report Type: 
  Country: None (occurrence: None)
  Receive Date: 20110401
  Receipt Date: 20110318
  Transmission Date: 20111010
  Serious: Yes (Death, Hospitalization)
  Sender: FDA-Public Use
  Company Number: US-ROCHE-766890

PATIENT
  Age: 21 Year
  Sex: Female

DRUGS (4)
  1. OXALIPLATIN [Suspect]
     Indication: COLON CANCER
     Route: 065
  2. FLUOROURACIL [Suspect]
     Indication: COLON CANCER
     Route: 065
  3. LEUCOVORIN [Suspect]
     Indication: COLON CANCER
     Route: 065
  4. AVASTIN [Suspect]
     Indication: COLON CANCER
     Route: 065

REACTIONS (3)
  - CONVULSION [None]
  - MYOCARDIAL INFARCTION [None]
  - DEATH [None]
